FAERS Safety Report 5428836-9 (Version None)
Quarter: 2007Q3

REPORT INFORMATION
  Report Type: 
  Country: None (occurrence: None)
  Receive Date: 20070829
  Receipt Date: 20061229
  Transmission Date: 20080115
  Serious: No
  Sender: FDA-Public Use
  Company Number: A0632854A

PATIENT
  Sex: Female

DRUGS (2)
  1. ZOVIRAX [Suspect]
     Dosage: 200MG AS REQUIRED
     Route: 048
  2. LOVASTATIN [Concomitant]

REACTIONS (1)
  - RASH [None]
